FAERS Safety Report 26001502 (Version 1)
Quarter: 2025Q4

REPORT INFORMATION
  Report Type: Spontaneous
  Country: US (occurrence: US)
  Receive Date: 20251105
  Receipt Date: 20251105
  Transmission Date: 20260117
  Serious: Yes (Other)
  Sender: GILEAD
  Company Number: US-GILEAD-2025-0734998

PATIENT
  Age: 42 Year
  Sex: Male

DRUGS (2)
  1. YEZTUGO [Suspect]
     Active Substance: LENACAPAVIR SODIUM
     Indication: Product used for unknown indication
     Dosage: UNK BILATERAL ABDOMINAL INJECTIONS
     Route: 065
     Dates: start: 20251015, end: 20251015
  2. YEZTUGO [Suspect]
     Active Substance: LENACAPAVIR SODIUM
     Indication: Product used for unknown indication
     Dosage: UNK, TABLETS, BOTH DAYS OF ORAL MEDICATION PER PROTOCOL
     Route: 048
     Dates: start: 20251015, end: 20251016

REACTIONS (3)
  - Appendicitis noninfective [Unknown]
  - Injection site nodule [Not Recovered/Not Resolved]
  - Injection site pain [Recovered/Resolved]

NARRATIVE: CASE EVENT DATE: 20251021
